FAERS Safety Report 7076927-1 (Version None)
Quarter: 2010Q4

REPORT INFORMATION
  Report Type: 
  Country: None (occurrence: None)
  Receive Date: 20101029
  Receipt Date: 20101029
  Transmission Date: 20110411
  Serious: No
  Sender: FDA-Public Use
  Company Number: None

PATIENT
  Age: 39 Year
  Sex: Female
  Weight: 49.8957 kg

DRUGS (1)
  1. AVELOX [Suspect]
     Indication: STAPHYLOCOCCAL INFECTION
     Dosage: 400MG TABLET 1 PER DAY PO
     Route: 048
     Dates: start: 20100107, end: 20100111

REACTIONS (3)
  - JOINT DISLOCATION [None]
  - ROTATOR CUFF SYNDROME [None]
  - TENDON RUPTURE [None]
